FAERS Safety Report 4495927-9 (Version None)
Quarter: 2004Q3

REPORT INFORMATION
  Report Type: 
  Country: None (occurrence: None)
  Receive Date: 20040927
  Receipt Date: 20040524
  Transmission Date: 20050211
  Serious: No
  Sender: FDA-Public Use
  Company Number: USA040568369

PATIENT
  Age: 17 Year
  Sex: Male

DRUGS (2)
  1. STRATTERA [Suspect]
     Dosage: 10 MG/M2 DAY
     Dates: start: 20040401
  2. ASPIRIN [Concomitant]

REACTIONS (1)
  - DRUG SCREEN POSITIVE [None]
